FAERS Safety Report 6211970-3 (Version None)
Quarter: 2009Q2

REPORT INFORMATION
  Report Type: 
  Country: None (occurrence: None)
  Receive Date: 20090602
  Receipt Date: 20090521
  Transmission Date: 20091009
  Serious: Yes (Death)
  Sender: FDA-Public Use
  Company Number: US-AVENTIS-200913770US

PATIENT
  Age: 93 Year
  Sex: Female

DRUGS (3)
  1. LANTUS [Suspect]
     Route: 058
     Dates: start: 20090401
  2. LANTUS [Suspect]
     Route: 058
     Dates: start: 20090401, end: 20090401
  3. OPTICLIK (INSULIN INJECTION PEN) [Suspect]
     Dates: start: 20090401

REACTIONS (5)
  - BLOOD GLUCOSE DECREASED [None]
  - DIABETES MELLITUS INADEQUATE CONTROL [None]
  - HYPERHIDROSIS [None]
  - MYOCARDIAL INFARCTION [None]
  - NERVOUSNESS [None]
